FAERS Safety Report 5958533-2 (Version None)
Quarter: 2008Q4

REPORT INFORMATION
  Report Type: 
  Country: None (occurrence: None)
  Receive Date: 20081119
  Receipt Date: 20081114
  Transmission Date: 20090506
  Serious: Yes (Hospitalization, Other)
  Sender: FDA-Public Use
  Company Number: PHHY2008ES28370

PATIENT
  Age: 82 Year
  Sex: Male

DRUGS (6)
  1. VOLTAREN [Suspect]
     Indication: PAIN
     Dosage: 50 MG
     Route: 048
     Dates: start: 20070701
  2. INACID [Interacting]
     Indication: PAIN
     Dosage: UNK
     Route: 048
     Dates: start: 20080707
  3. ENANTYUM [Interacting]
     Indication: PAIN
     Dosage: UNK
     Dates: start: 20080716
  4. LISINOPRIL [Concomitant]
     Indication: HYPERTENSION
     Route: 048
  5. FABROVEN [Concomitant]
     Route: 048
  6. NOLOTIL [Concomitant]
     Indication: PAIN
     Route: 048

REACTIONS (3)
  - CARDIAC FAILURE ACUTE [None]
  - DRUG INTERACTION [None]
  - RENAL FAILURE [None]
